FAERS Safety Report 13526115 (Version 1)
Quarter: 2017Q2

REPORT INFORMATION
  Report Type: Spontaneous
  Country: US (occurrence: US)
  Receive Date: 20170509
  Receipt Date: 20170509
  Transmission Date: 20170830
  Serious: No
  Sender: FDA-Public Use
  Company Number: US-GRANULES INDIA LIMITED-2020426

PATIENT
  Age: 67 Year
  Sex: Female
  Weight: 93.64 kg

DRUGS (9)
  1. METFORMIN HYDROCHLORIDE. [Suspect]
     Active Substance: METFORMIN HYDROCHLORIDE
     Indication: TYPE 2 DIABETES MELLITUS
     Route: 048
     Dates: start: 20170427
  2. HYDROCHLOROTHIAZIDE. [Concomitant]
     Active Substance: HYDROCHLOROTHIAZIDE
  3. ZYRTEC [Concomitant]
     Active Substance: CETIRIZINE HYDROCHLORIDE
  4. DIGOXIN. [Concomitant]
     Active Substance: DIGOXIN
  5. FINASTERIDE. [Concomitant]
     Active Substance: FINASTERIDE
  6. ANASTROZOLE. [Concomitant]
     Active Substance: ANASTROZOLE
  7. ANDROGEL [Concomitant]
     Active Substance: TESTOSTERONE
  8. CARVEDILOL. [Concomitant]
     Active Substance: CARVEDILOL
  9. CIALIS [Concomitant]
     Active Substance: TADALAFIL

REACTIONS (4)
  - Rash [Not Recovered/Not Resolved]
  - Rash pruritic [Not Recovered/Not Resolved]
  - Flushing [Not Recovered/Not Resolved]
  - Burning sensation [Not Recovered/Not Resolved]

NARRATIVE: CASE EVENT DATE: 20170428
